FAERS Safety Report 15863760 (Version 1)
Quarter: 2019Q1

REPORT INFORMATION
  Report Type: Spontaneous
  Country: KR (occurrence: KR)
  Receive Date: 20190124
  Receipt Date: 20190124
  Transmission Date: 20190417
  Serious: Yes (Other)
  Sender: FDA-Public Use
  Company Number: KR-FRESENIUS KABI-FK201900807

PATIENT
  Age: 34 Year
  Sex: Male
  Weight: 79 kg

DRUGS (4)
  1. LIDOCAINE 2% (MANUFACTURER UNKNOWN) [Suspect]
     Active Substance: LIDOCAINE
     Indication: NERVE BLOCK
     Route: 065
  2. EPINEPHRINE/SODIUM CHLORIDE [Suspect]
     Active Substance: EPINEPHRINE
     Indication: NERVE BLOCK
     Dosage: SALINE WITH 1:200,000 EPINEPHRINE
     Route: 065
  3. FENTANYL. [Concomitant]
     Active Substance: FENTANYL
     Indication: PRODUCT USED FOR UNKNOWN INDICATION
     Route: 037
  4. ROPIVACAINE (MANUFACTURER UNKNOWN) [Suspect]
     Active Substance: ROPIVACAINE
     Indication: NERVE BLOCK
     Route: 065

REACTIONS (3)
  - Product administration error [Recovered/Resolved]
  - Anaesthetic complication [Recovered/Resolved]
  - Seizure [Recovered/Resolved]
